FAERS Safety Report 21691002 (Version 1)
Quarter: 2022Q4

REPORT INFORMATION
  Report Type: Spontaneous
  Country: FR (occurrence: FR)
  Receive Date: 20221207
  Receipt Date: 20221207
  Transmission Date: 20230113
  Serious: Yes (Life-Threatening)
  Sender: FDA-Public Use
  Company Number: None

PATIENT
  Age: 45 Year
  Sex: Male
  Weight: 50 kg

DRUGS (8)
  1. HYDROXYUREA [Suspect]
     Active Substance: HYDROXYUREA
     Indication: Chronic myeloid leukaemia
     Dosage: BID, REDUCED
     Route: 048
     Dates: start: 20220228
  2. HYDROXYUREA [Suspect]
     Active Substance: HYDROXYUREA
     Indication: Chronic myeloid leukaemia
     Dosage: 1.5 G/DAY FROM 02/09 TO 02/13?, 4.5 G/DAY FROM 02/13 TO 02/22, ?1 G/DAY FROM 02/22?TID
     Route: 048
     Dates: end: 20220224
  3. GAVISCON [Concomitant]
     Active Substance: ALUMINUM HYDROXIDE\MAGNESIUM CARBONATE
     Dosage: GRANULATED IN SACHET-DOSE
  4. SPRYCEL [Concomitant]
     Active Substance: DASATINIB
  5. SPRYCEL [Concomitant]
     Active Substance: DASATINIB
  6. ENTECAVIR [Concomitant]
     Active Substance: ENTECAVIR
  7. LERCANIDIPINE HYDROCHLORIDE [Concomitant]
     Active Substance: LERCANIDIPINE HYDROCHLORIDE
  8. PANTOPRAZOLE [Concomitant]
     Active Substance: PANTOPRAZOLE

REACTIONS (3)
  - Pancytopenia [Recovered/Resolved]
  - Accidental overdose [Recovered/Resolved]
  - Incorrect dose administered [Recovered/Resolved]

NARRATIVE: CASE EVENT DATE: 20220201
